FAERS Safety Report 26151292 (Version 1)
Quarter: 2025Q4

REPORT INFORMATION
  Report Type: Spontaneous
  Country: US (occurrence: None)
  Receive Date: 20251212
  Receipt Date: 20251212
  Transmission Date: 20260118
  Serious: No
  Sender: APOTEX
  Company Number: US-APOTEX-2025AP033197

PATIENT
  Age: 58 Year
  Sex: Female

DRUGS (2)
  1. METFORMIN [Suspect]
     Active Substance: METFORMIN HYDROCHLORIDE
     Indication: Type 2 diabetes mellitus
     Dosage: UNK
     Route: 065
  2. INSULIN NOS [Suspect]
     Active Substance: INSULIN NOS
     Indication: Type 2 diabetes mellitus
     Dosage: UNK
     Route: 065

REACTIONS (1)
  - Treatment noncompliance [Unknown]
